FAERS Safety Report 20882648 (Version 1)
Quarter: 2022Q2

REPORT INFORMATION
  Report Type: Spontaneous
  Country: CN (occurrence: CN)
  Receive Date: 20220527
  Receipt Date: 20220527
  Transmission Date: 20220721
  Serious: Yes (Hospitalization)
  Sender: FDA-Public Use
  Company Number: CN-ORGANON-O2205CHN001413

PATIENT
  Age: 53 Year
  Sex: Male
  Weight: 60 kg

DRUGS (1)
  1. HYZAAR [Suspect]
     Active Substance: HYDROCHLOROTHIAZIDE\LOSARTAN POTASSIUM
     Indication: Hypertension
     Dosage: 1 TABLET, QD
     Route: 048
     Dates: start: 20220408, end: 20220508

REACTIONS (3)
  - Chest discomfort [Recovered/Resolved]
  - Hypotension [Recovered/Resolved]
  - Chest pain [Recovered/Resolved]

NARRATIVE: CASE EVENT DATE: 20220503
